FAERS Safety Report 20240941 (Version 1)
Quarter: 2021Q4

REPORT INFORMATION
  Report Type: Spontaneous
  Country: US (occurrence: None)
  Receive Date: 20211228
  Receipt Date: 20211228
  Transmission Date: 20220303
  Serious: Yes (Other)
  Sender: FDA-Public Use
  Company Number: None

PATIENT
  Age: 37 Year
  Sex: Female
  Weight: 122.9 kg

DRUGS (5)
  1. REMDESIVIR [Suspect]
     Active Substance: REMDESIVIR
     Indication: COVID-19
     Dosage: FREQUENCY : DAILY;?
     Route: 042
     Dates: start: 20211224, end: 20211225
  2. dexamethasone 6 mg IV [Concomitant]
     Dates: end: 20211226
  3. Heparin SC [Concomitant]
     Dates: end: 20211228
  4. VITAMINS [Concomitant]
     Active Substance: VITAMINS
     Dates: end: 20211228
  5. Sennosides 8.6 mg [Concomitant]
     Dates: end: 20211228

REACTIONS (1)
  - Hepatic enzyme increased [None]

NARRATIVE: CASE EVENT DATE: 20211226
